FAERS Safety Report 21812340 (Version 1)
Quarter: 2023Q1

REPORT INFORMATION
  Report Type: Spontaneous
  Country: CA (occurrence: CA)
  Receive Date: 20230103
  Receipt Date: 20230103
  Transmission Date: 20230417
  Serious: Yes (Other)
  Sender: FDA-Public Use
  Company Number: CA-INSUD PHARMA-2212CA05692

PATIENT

DRUGS (1)
  1. NUVESSA [Suspect]
     Active Substance: METRONIDAZOLE
     Indication: Colitis ulcerative
     Dosage: UNK
     Route: 065

REACTIONS (12)
  - Neurotoxicity [Recovering/Resolving]
  - Nystagmus [Not Recovered/Not Resolved]
  - Balance disorder [Not Recovered/Not Resolved]
  - Nausea [Recovering/Resolving]
  - Fall [Recovering/Resolving]
  - Oscillopsia [Not Recovered/Not Resolved]
  - Diplopia [Recovering/Resolving]
  - Coordination abnormal [Recovering/Resolving]
  - Dysarthria [Recovering/Resolving]
  - Paraesthesia [Recovering/Resolving]
  - Dysmetria [Recovering/Resolving]
  - Dysdiadochokinesis [Recovering/Resolving]
